FAERS Safety Report 22323930 (Version 1)
Quarter: 2023Q2

REPORT INFORMATION
  Report Type: Report from Study
  Country: US (occurrence: None)
  Receive Date: 20230516
  Receipt Date: 20230516
  Transmission Date: 20230721
  Serious: Yes (Life-Threatening, Hospitalization, Other)
  Sender: FDA-Public Use
  Company Number: US-ROCHE-3349449

PATIENT

DRUGS (8)
  1. RITUXIMAB [Suspect]
     Active Substance: RITUXIMAB
     Indication: Burkitt^s lymphoma
     Dosage: SUBSEQUENT DOSES ON 27-MAR-2013, 25-APR-2013, 23-MAY-2013
     Route: 065
     Dates: start: 20130301
  2. FILGRASTIM [Suspect]
     Active Substance: FILGRASTIM
     Indication: Burkitt^s lymphoma
     Dosage: SUBSEQUENT DOSES ON 01/APR/2013, 1-MAY-2013
     Route: 065
     Dates: start: 20130308, end: 20130317
  3. PREDNISONE [Suspect]
     Active Substance: PREDNISONE
     Indication: Burkitt^s lymphoma
     Dosage: SUBSEQUENCT DOSE ON 27-MAR-2013, 27-APR-2013, 24-MAY-2013
     Route: 065
     Dates: start: 20130302, end: 20130306
  4. DOXORUBICIN [Suspect]
     Active Substance: DOXORUBICIN
     Indication: Burkitt^s lymphoma
     Dosage: SUSEQUENT DOSE ON 27-MAR-2013, 26-APR-2013, 24-MAY-2013
     Route: 065
     Dates: start: 20130302, end: 20130306
  5. ETOPOSIDE [Suspect]
     Active Substance: ETOPOSIDE
     Indication: Burkitt^s lymphoma
     Dosage: SUBSEQUENT DOSE ON 27-MAR-2013, 26-APR-2013, 24-MAY-2013
     Route: 065
     Dates: start: 20130302, end: 20130306
  6. VINCRISTINE [Suspect]
     Active Substance: VINCRISTINE
     Indication: Burkitt^s lymphoma
     Dosage: SUBSEQUENT DOSE ON 27-MAR-2013, 26-APR-2013, 24-MAY-2013, 28-MAY-2013
     Route: 065
     Dates: start: 20130302, end: 20130306
  7. CYCLOPHOSPHAMIDE [Suspect]
     Active Substance: CYCLOPHOSPHAMIDE
     Indication: Burkitt^s lymphoma
     Dosage: SUBSEQUENT DOSE ON 31-MAR-2013, 30-APR-2013, 28-MAY-2013
     Route: 065
     Dates: start: 20130306, end: 20130306
  8. METHOTREXATE [Suspect]
     Active Substance: METHOTREXATE
     Indication: Burkitt^s lymphoma
     Dosage: SUBSEQUENT DOSE ON 26-APR-2013, 23-MAY-2013, 29-MAY-2013
     Route: 065
     Dates: start: 20130429

REACTIONS (3)
  - Sepsis [Recovered/Resolved]
  - Febrile neutropenia [Recovered/Resolved]
  - Respiratory failure [Recovered/Resolved]

NARRATIVE: CASE EVENT DATE: 20130301
